FAERS Safety Report 17348624 (Version 1)
Quarter: 2020Q1

REPORT INFORMATION
  Report Type: Report from Study
  Country: US (occurrence: US)
  Receive Date: 20200129
  Receipt Date: 20200129
  Transmission Date: 20200409
  Serious: No
  Sender: FDA-Public Use
  Company Number: US-EXELIXIS-CABO-19024381

PATIENT
  Sex: Male

DRUGS (5)
  1. CABOMETYX [Suspect]
     Active Substance: CABOZANTINIB S-MALATE
     Dosage: 20 MG, QD
     Route: 048
  2. CABOMETYX [Suspect]
     Active Substance: CABOZANTINIB S-MALATE
     Indication: RENAL CANCER
     Dosage: 40 MG, QD
     Route: 048
     Dates: start: 201708
  3. AFINITOR [Concomitant]
     Active Substance: EVEROLIMUS
     Dosage: UNK
  4. ASPIR LOW [Concomitant]
     Active Substance: ASPIRIN
     Dosage: UNK
  5. LENVIMA [Suspect]
     Active Substance: LENVATINIB
     Indication: RENAL CANCER
     Dosage: UNK

REACTIONS (2)
  - Blood pressure increased [Unknown]
  - Blister [Unknown]
